FAERS Safety Report 15149872 (Version 1)
Quarter: 2018Q3

REPORT INFORMATION
  Report Type: Spontaneous
  Country: US (occurrence: US)
  Receive Date: 20180716
  Receipt Date: 20180716
  Transmission Date: 20181010
  Serious: No
  Sender: FDA-Public Use
  Company Number: US-VANDA PHARMACEUTICALS, INC-2018TASUS002295

PATIENT
  Sex: Female

DRUGS (1)
  1. HETLIOZ [Suspect]
     Active Substance: TASIMELTEON
     Indication: CIRCADIAN RHYTHM SLEEP DISORDER
     Dosage: 20 MG, QHS AT BEDTIME
     Route: 048
     Dates: start: 20180517

REACTIONS (5)
  - Drug prescribing error [Unknown]
  - Abdominal discomfort [Unknown]
  - Diarrhoea [Unknown]
  - Adverse drug reaction [Unknown]
  - Drug administered to patient of inappropriate age [Unknown]
